FAERS Safety Report 14652101 (Version 1)
Quarter: 2018Q1

REPORT INFORMATION
  Report Type: Spontaneous
  Country: US (occurrence: US)
  Receive Date: 20180318
  Receipt Date: 20180318
  Transmission Date: 20180509
  Serious: No
  Sender: FDA-Public Use
  Company Number: US-009507513-1803USA004502

PATIENT
  Age: 30 Year
  Sex: Female
  Weight: 115.19 kg

DRUGS (2)
  1. HYDROCHLOROTHIAZIDE. [Concomitant]
     Active Substance: HYDROCHLOROTHIAZIDE
  2. NEXPLANON [Suspect]
     Active Substance: ETONOGESTREL
     Indication: CONTRACEPTION
     Dosage: 1 DF, ONE ROD EVERY THREE YEARS
     Route: 059
     Dates: start: 20170207

REACTIONS (4)
  - Administration site discomfort [Not Recovered/Not Resolved]
  - Device kink [Not Recovered/Not Resolved]
  - Implant site pain [Not Recovered/Not Resolved]
  - Device breakage [Not Recovered/Not Resolved]

NARRATIVE: CASE EVENT DATE: 201801
